FAERS Safety Report 24803162 (Version 1)
Quarter: 2025Q1

REPORT INFORMATION
  Report Type: Spontaneous
  Country: FR (occurrence: FR)
  Receive Date: 20250103
  Receipt Date: 20250103
  Transmission Date: 20250409
  Serious: Yes (Other)
  Sender: HRA PHARMA
  Company Number: FR-ORG100014127-2024000361

PATIENT
  Age: 60 Year
  Sex: Female
  Weight: 67 kg

DRUGS (7)
  1. LYSODREN [Suspect]
     Active Substance: MITOTANE
     Indication: Adrenal gland cancer
     Dosage: 500 MG 3 TABLETS PER DAY
     Dates: start: 20240817, end: 20240905
  2. QUETIAPINE [Interacting]
     Active Substance: QUETIAPINE
     Indication: Schizophrenia
     Dates: start: 202410
  3. HYDROCORTISONE [Suspect]
     Active Substance: HYDROCORTISONE
     Indication: Secondary adrenocortical insufficiency
     Dates: start: 20240817
  4. TERALITHE [CARBONATE DE LITHIUM] [Concomitant]
     Indication: Product used for unknown indication
     Dosage: 2.5 TABS OF 400MG AT BEDTIME
  5. PRAZEPAM [PRAZEPAM] [Concomitant]
     Indication: Product used for unknown indication
  6. LANSOPRAZOLE [Concomitant]
     Active Substance: LANSOPRAZOLE
     Indication: Product used for unknown indication
  7. CRESTOR [ROSUVASTATINE CALCIQUE] [Concomitant]
     Indication: Product used for unknown indication

REACTIONS (3)
  - Schizophrenia [Recovering/Resolving]
  - Anger [Recovering/Resolving]
  - Drug interaction [Recovering/Resolving]

NARRATIVE: CASE EVENT DATE: 20240817
